FAERS Safety Report 21392641 (Version 2)
Quarter: 2022Q4

REPORT INFORMATION
  Report Type: Spontaneous
  Country: US (occurrence: US)
  Receive Date: 20220929
  Receipt Date: 20221014
  Transmission Date: 20230113
  Serious: Yes (Other)
  Sender: FDA-Public Use
  Company Number: US-TEVA-2022-US-2077711

PATIENT
  Age: 69 Year
  Sex: Female

DRUGS (10)
  1. METHOTREXATE [Suspect]
     Active Substance: METHOTREXATE
     Indication: Mucous membrane pemphigoid
     Dosage: SCHEDULE TO RECEIVE FOR 10 MONTHS, 15 MG ONCE IN WEEK
     Route: 065
     Dates: start: 2017
  2. METHOTREXATE [Suspect]
     Active Substance: METHOTREXATE
     Dosage: 12.5 MG ONCE IN WEEK
     Route: 065
     Dates: start: 202102
  3. METHOTREXATE [Suspect]
     Active Substance: METHOTREXATE
     Dosage: 20 MG ONCE IN WEEK
     Route: 065
     Dates: start: 202108
  4. PREDNISONE [Suspect]
     Active Substance: PREDNISONE
     Indication: Mucous membrane pemphigoid
     Dosage: 20 MILLIGRAM DAILY; SCHEDULE TO RECEIVE FOR 10 MONTHS
     Route: 065
     Dates: start: 2017
  5. RITUXIMAB [Suspect]
     Active Substance: RITUXIMAB
     Indication: Mucous membrane pemphigoid
     Dosage: 375 MG/M2 ONCE IN WEEK
     Route: 065
     Dates: start: 2017
  6. RITUXIMAB [Suspect]
     Active Substance: RITUXIMAB
     Dosage: 375 MG/M2 ONCE IN MONTH
     Route: 065
     Dates: start: 2017
  7. RITUXIMAB [Suspect]
     Active Substance: RITUXIMAB
     Dosage: EVERY 4 MONTHS THEREAFTER, 375 MG/M2 ONCE IN 4 MONTHS
     Route: 065
     Dates: start: 2018
  8. CYCLOPHOSPHAMIDE [Suspect]
     Active Substance: CYCLOPHOSPHAMIDE
     Indication: Mucous membrane pemphigoid
     Dosage: 2 MG/KG DAILY;
     Route: 065
     Dates: start: 2018
  9. CYCLOPHOSPHAMIDE [Suspect]
     Active Substance: CYCLOPHOSPHAMIDE
     Dosage: .5 MG/KG DAILY;
     Route: 065
     Dates: start: 2018
  10. TAMOXIFEN [Concomitant]
     Active Substance: TAMOXIFEN
     Indication: Hormone receptor positive breast cancer
     Route: 065
     Dates: end: 2020

REACTIONS (7)
  - Spinal compression fracture [Unknown]
  - Keratitis fungal [Unknown]
  - Cytopenia [Unknown]
  - Diarrhoea [Unknown]
  - Hormone receptor positive breast cancer [Recovering/Resolving]
  - Breast cancer recurrent [Recovering/Resolving]
  - Off label use [Unknown]

NARRATIVE: CASE EVENT DATE: 20170101
